FAERS Safety Report 5424634-0 (Version None)
Quarter: 2007Q3

REPORT INFORMATION
  Report Type: 
  Country: None (occurrence: None)
  Receive Date: 20070731
  Receipt Date: 20070331
  Transmission Date: 20080115
  Serious: No
  Sender: FDA-Public Use
  Company Number: 2007PV032763

PATIENT
  Age: 36 Year
  Sex: Male

DRUGS (2)
  1. EXENATIDE (EXENATIDE) PEN, DISPOSABLE [Suspect]
     Indication: TYPE 2 DIABETES MELLITUS
     Dosage: 5 UG, SUBCUTANEOUS
     Route: 058
     Dates: start: 20070329
  2. NOVOLOG MIX 70/30 [Concomitant]

REACTIONS (1)
  - PAIN IN JAW [None]
